FAERS Safety Report 5823064-7 (Version None)
Quarter: 2008Q3

REPORT INFORMATION
  Report Type: 
  Country: None (occurrence: None)
  Receive Date: 20080725
  Receipt Date: 20070716
  Transmission Date: 20090109
  Serious: Yes (Other)
  Sender: FDA-Public Use
  Company Number: US-AMGEN-KDL220668

PATIENT
  Sex: Female
  Weight: 80 kg

DRUGS (2)
  1. PROCRIT [Suspect]
     Indication: PREOPERATIVE CARE
     Dates: start: 20070413, end: 20070424
  2. HEPARIN [Concomitant]
     Dates: start: 20070411

REACTIONS (2)
  - DRUG INEFFECTIVE [None]
  - EMBOLISM [None]
